FAERS Safety Report 23888356 (Version 1)
Quarter: 2024Q2

REPORT INFORMATION
  Report Type: Spontaneous
  Country: US (occurrence: None)
  Receive Date: 20240522
  Receipt Date: 20240522
  Transmission Date: 20240716
  Serious: Yes (Other)
  Sender: FDA-Public Use
  Company Number: None

PATIENT
  Age: 28 Year
  Sex: Male

DRUGS (1)
  1. BIKTARVY [Suspect]
     Active Substance: BICTEGRAVIR SODIUM\EMTRICITABINE\TENOFOVIR ALAFENAMIDE FUMARATE
     Indication: HIV infection
     Dosage: OTHER QUANTITY : 50-200-300;?FREQUENCY : DAILY;?
     Route: 048
     Dates: start: 202305

REACTIONS (6)
  - Blood lactic acid increased [None]
  - Atrioventricular block [None]
  - Palpitations [None]
  - Angina pectoris [None]
  - Disease complication [None]
  - Therapy cessation [None]

NARRATIVE: CASE EVENT DATE: 20230501
